FAERS Safety Report 5032481-7 (Version None)
Quarter: 2006Q2

REPORT INFORMATION
  Report Type: 
  Country: None (occurrence: None)
  Receive Date: 20060622
  Receipt Date: 20060613
  Transmission Date: 20061013
  Serious: Yes (Hospitalization)
  Sender: FDA-Public Use
  Company Number: JP-JNJFOC-20060600667

PATIENT
  Age: 68 Year
  Sex: Female

DRUGS (8)
  1. ITRIZOLE [Suspect]
     Route: 048
  2. ITRIZOLE [Suspect]
     Indication: NAIL TINEA
     Route: 048
  3. DIPYRIDAMOLE [Concomitant]
     Route: 048
  4. TOCOPHEROL CONCENTRATE CAP [Concomitant]
     Route: 048
  5. MECOBALAMIN [Concomitant]
     Route: 048
  6. ISOSORBIDE DINITRATE [Concomitant]
     Route: 048
  7. ENALAPRIL MALEATE [Concomitant]
     Route: 048
  8. ALFACALCIDOL [Concomitant]
     Route: 048

REACTIONS (2)
  - JAUNDICE [None]
  - PRURITUS [None]
